FAERS Safety Report 5528727-9 (Version None)
Quarter: 2007Q4

REPORT INFORMATION
  Report Type: 
  Country: None (occurrence: None)
  Receive Date: 20071113
  Receipt Date: 20070801
  Transmission Date: 20080405
  Serious: Yes (Other)
  Sender: FDA-Public Use
  Company Number: 200713683US

PATIENT
  Age: 37 Year
  Sex: Female

DRUGS (3)
  1. APIDRA [Suspect]
     Indication: TYPE 1 DIABETES MELLITUS
  2. SYNTHROID [Concomitant]
  3. PROZAC [Concomitant]

REACTIONS (4)
  - DYSPNOEA [None]
  - HYPERGLYCAEMIA [None]
  - NAUSEA [None]
  - VISION BLURRED [None]
